FAERS Safety Report 23035057 (Version 1)
Quarter: 2023Q4

REPORT INFORMATION
  Report Type: Spontaneous
  Country: GB (occurrence: GB)
  Receive Date: 20231005
  Receipt Date: 20231005
  Transmission Date: 20240110
  Serious: Yes (Hospitalization, Other)
  Sender: FDA-Public Use
  Company Number: GB-JNJFOC-20230963210

PATIENT

DRUGS (3)
  1. IBRUTINIB [Suspect]
     Active Substance: IBRUTINIB
     Indication: Chronic lymphocytic leukaemia
     Route: 048
  2. VENETOCLAX [Suspect]
     Active Substance: VENETOCLAX
     Indication: Chronic lymphocytic leukaemia
     Route: 065
  3. IDELALISIB [Suspect]
     Active Substance: IDELALISIB
     Indication: Chronic lymphocytic leukaemia
     Route: 065

REACTIONS (17)
  - Arrhythmia [Unknown]
  - Lymphocytosis [Unknown]
  - Musculoskeletal pain [Unknown]
  - Cytopenia [Unknown]
  - Haematotoxicity [Unknown]
  - Gastrointestinal haemorrhage [Unknown]
  - Contusion [Unknown]
  - Fatigue [Unknown]
  - Anaemia [Unknown]
  - Diarrhoea [Unknown]
  - Haematuria [Unknown]
  - Atrial fibrillation [Unknown]
  - Neutropenia [Unknown]
  - Infection [Unknown]
  - Lymphopenia [Unknown]
  - Thrombocytopenia [Unknown]
  - Arthralgia [Unknown]
